FAERS Safety Report 13559777 (Version 1)
Quarter: 2017Q2

REPORT INFORMATION
  Report Type: Spontaneous
  Country: CH (occurrence: CH)
  Receive Date: 20170518
  Receipt Date: 20170518
  Transmission Date: 20170830
  Serious: Yes (Hospitalization, Other)
  Sender: FDA-Public Use
  Company Number: CH-JNJFOC-20170509665

PATIENT
  Age: 40 Year
  Sex: Male

DRUGS (2)
  1. DARZALEX [Suspect]
     Active Substance: DARATUMUMAB
     Indication: NATURAL KILLER-CELL LYMPHOBLASTIC LYMPHOMA
  2. DARZALEX [Suspect]
     Active Substance: DARATUMUMAB
     Indication: NON-HODGKIN^S LYMPHOMA

REACTIONS (4)
  - Pyrexia [Recovered/Resolved]
  - Fatigue [Not Recovered/Not Resolved]
  - Bacterial infection [Recovered/Resolved]
  - Off label use [Unknown]
